FAERS Safety Report 16905593 (Version 4)
Quarter: 2020Q1

REPORT INFORMATION
  Report Type: Report from Study
  Country: None (occurrence: AU)
  Receive Date: 20191010
  Receipt Date: 20200304
  Transmission Date: 20200409
  Serious: Yes (Life-Threatening, Hospitalization, Disabling, Other)
  Sender: FDA-Public Use
  Company Number: AU-ABBVIE-19P-008-2936216-00

PATIENT
  Age: 62 Year
  Sex: Female

DRUGS (5)
  1. AZACITIDINE. [Suspect]
     Active Substance: AZACITIDINE
     Indication: MYELODYSPLASTIC SYNDROME
     Dosage: DAY 1-5, 8 AND 9 OF EACH 28 DAY CYCLE
     Route: 058
     Dates: start: 20190902, end: 20190910
  2. ROSUVASTATIN. [Concomitant]
     Active Substance: ROSUVASTATIN
     Indication: HYPERCHOLESTEROLAEMIA
     Route: 048
     Dates: start: 201301
  3. DEFERASIROX. [Concomitant]
     Active Substance: DEFERASIROX
     Indication: IRON OVERLOAD
     Route: 048
     Dates: start: 20190606
  4. VENETOCLAX. [Suspect]
     Active Substance: VENETOCLAX
     Indication: MYELODYSPLASTIC SYNDROME
     Dosage: DAYS 1-14 OF EACH 28-DAY CYCLE
     Route: 048
     Dates: start: 20190902, end: 20190915
  5. DENOSUMAB [Concomitant]
     Active Substance: DENOSUMAB
     Indication: OSTEOPOROSIS
     Route: 058
     Dates: start: 201203

REACTIONS (4)
  - Sepsis [Recovered/Resolved]
  - Myocarditis [Recovered/Resolved]
  - Hypotension [Recovered/Resolved]
  - Left ventricular dysfunction [Not Recovered/Not Resolved]

NARRATIVE: CASE EVENT DATE: 20190922
